FAERS Safety Report 22073869 (Version 1)
Quarter: 2023Q1

REPORT INFORMATION
  Report Type: Spontaneous
  Country: US (occurrence: US)
  Receive Date: 20230308
  Receipt Date: 20230308
  Transmission Date: 20230417
  Serious: Yes (Hospitalization, Other)
  Sender: FDA-Public Use
  Company Number: US-JAZZ PHARMACEUTICALS-2023-US-005073

PATIENT
  Age: 43 Year
  Sex: Female

DRUGS (1)
  1. XYWAV [Suspect]
     Active Substance: CALCIUM OXYBATE\MAGNESIUM OXYBATE\POTASSIUM OXYBATE\SODIUM OXYBATE
     Indication: Product used for unknown indication

REACTIONS (4)
  - Suspected suicide attempt [Unknown]
  - Depressed level of consciousness [Recovering/Resolving]
  - Electrolyte imbalance [Recovering/Resolving]
  - Hypertension [Recovering/Resolving]
